FAERS Safety Report 4834056-9 (Version None)
Quarter: 2005Q4

REPORT INFORMATION
  Report Type: 
  Country: None (occurrence: None)
  Receive Date: 20051118
  Receipt Date: 20051118
  Transmission Date: 20060501
  Serious: Yes (Other)
  Sender: FDA-Public Use
  Company Number: None

PATIENT
  Sex: Female
  Weight: 71.8 kg

DRUGS (5)
  1. TAXOL [Suspect]
     Indication: ENDOMETRIAL CANCER
     Dosage: SEE IMAGE
     Route: 042
     Dates: start: 20051005, end: 20051026
  2. TAXOL [Suspect]
     Indication: ENDOMETRIAL CANCER
     Dosage: SEE IMAGE
     Route: 042
     Dates: start: 20051026
  3. CARBOPLATIN [Suspect]
     Dosage: SEE IMAGE
     Dates: start: 20051005, end: 20051026
  4. OXYCODONE [Concomitant]
  5. OXYCONTIN [Concomitant]

REACTIONS (1)
  - TRANSAMINASES INCREASED [None]
